FAERS Safety Report 17360557 (Version 8)
Quarter: 2020Q4

REPORT INFORMATION
  Report Type: Report from Study
  Country: CA (occurrence: CA)
  Receive Date: 20200203
  Receipt Date: 20201208
  Transmission Date: 20210113
  Serious: Yes (Hospitalization, Other)
  Sender: FDA-Public Use
  Company Number: NVSC2020CA025081

PATIENT
  Age: 63 Year
  Sex: Female

DRUGS (3)
  1. SANDOSTATIN LAR DEPOT [Suspect]
     Active Substance: OCTREOTIDE ACETATE
  2. SANDOSTATIN LAR DEPOT [Suspect]
     Active Substance: OCTREOTIDE ACETATE
     Indication: NEUROENDOCRINE TUMOUR
     Dosage: 30 MG, Q4W
     Route: 030
     Dates: start: 20190201
  3. SANDOSTATIN LAR DEPOT [Suspect]
     Active Substance: OCTREOTIDE ACETATE
     Indication: CARCINOID TUMOUR
     Dosage: UNK
     Route: 030
     Dates: start: 20201010

REACTIONS (14)
  - Rectal cancer [Unknown]
  - Hip fracture [Unknown]
  - Pain [Unknown]
  - Stress [Unknown]
  - Injection site injury [Unknown]
  - Gait disturbance [Unknown]
  - Injection site mass [Unknown]
  - Injection site pain [Unknown]
  - Second primary malignancy [Unknown]
  - Asthenia [Unknown]
  - Macular degeneration [Unknown]
  - Post procedural complication [Unknown]
  - Fall [Unknown]
  - Fear [Unknown]

NARRATIVE: CASE EVENT DATE: 20200814
